FAERS Safety Report 10164154 (Version 1)
Quarter: 2014Q2

REPORT INFORMATION
  Report Type: Spontaneous
  Country: US (occurrence: US)
  Receive Date: 20140510
  Receipt Date: 20140510
  Transmission Date: 20141212
  Serious: No
  Sender: FDA-Public Use
  Company Number: US-BRISTOL-MYERS SQUIBB COMPANY-19991488

PATIENT
  Age: 74 Year
  Sex: Male

DRUGS (11)
  1. BYDUREON [Suspect]
     Dates: start: 20131226
  2. HUMALOG [Concomitant]
     Dosage: HUMALOG INSULIN 100 UNITS
  3. IRBESARTAN [Concomitant]
  4. LESCOL XL [Concomitant]
  5. CHLORTHALIDONE [Concomitant]
  6. VITAMIN D [Concomitant]
  7. ALPRAZOLAM [Concomitant]
  8. METOPROLOL [Concomitant]
  9. SYNTHROID [Concomitant]
  10. BABY ASPIRIN [Concomitant]
  11. FOLIC ACID [Concomitant]

REACTIONS (1)
  - Drug ineffective [Unknown]
